FAERS Safety Report 13900567 (Version 1)
Quarter: 2017Q3

REPORT INFORMATION
  Report Type: Spontaneous
  Country: FR (occurrence: FR)
  Receive Date: 20170824
  Receipt Date: 20170824
  Transmission Date: 20171127
  Serious: Yes (Hospitalization)
  Sender: FDA-Public Use
  Company Number: FR-ASTRAZENECA-2017SE85947

PATIENT
  Age: 8954 Day
  Sex: Female

DRUGS (3)
  1. XEROQUEL [Suspect]
     Active Substance: QUETIAPINE FUMARATE
     Dosage: 950.0MG ONCE/SINGLE ADMINISTRATION
     Route: 048
     Dates: start: 20170507
  2. ZOPLICONE [Suspect]
     Active Substance: ZOPICLONE
     Dosage: 75.0MG ONCE/SINGLE ADMINISTRATION
     Route: 048
     Dates: start: 20170507
  3. DIAZEPAM. [Suspect]
     Active Substance: DIAZEPAM
     Dosage: 50 TO 60 MG IN A SINGLE DOSE
     Route: 048
     Dates: start: 20170507

REACTIONS (2)
  - Poisoning deliberate [Recovered/Resolved]
  - Coma [Recovered/Resolved]

NARRATIVE: CASE EVENT DATE: 20170507
